FAERS Safety Report 8579540-X (Version None)
Quarter: 2012Q3

REPORT INFORMATION
  Report Type: 
  Country: None (occurrence: None)
  Receive Date: 20120808
  Receipt Date: 20120806
  Transmission Date: 20120928
  Serious: Yes (Hospitalization)
  Sender: FDA-Public Use
  Company Number: US-GLAXOSMITHKLINE-A0988433A

PATIENT
  Age: 59 Year
  Sex: Female

DRUGS (3)
  1. OXYGEN [Concomitant]
  2. UNSPECIFIED MEDICATIONS [Concomitant]
     Indication: DYSPNOEA
  3. NICORETTE [Suspect]
     Indication: SMOKING CESSATION THERAPY
     Route: 002

REACTIONS (4)
  - MALAISE [None]
  - OVERDOSE [None]
  - DRUG ADMINISTRATION ERROR [None]
  - FEELING ABNORMAL [None]
